FAERS Safety Report 12073341 (Version 1)
Quarter: 2016Q1

REPORT INFORMATION
  Report Type: Spontaneous
  Country: US (occurrence: US)
  Receive Date: 20160212
  Receipt Date: 20160212
  Transmission Date: 20160526
  Serious: Yes (Hospitalization)
  Sender: FDA-Public Use
  Company Number: US-DRREDDYS-USA/USA/16/0076463

PATIENT
  Age: 71 Year
  Sex: Female

DRUGS (1)
  1. CLOPIDOGREL [Suspect]
     Active Substance: CLOPIDOGREL BISULFATE
     Indication: TRANSIENT ISCHAEMIC ATTACK
     Route: 065

REACTIONS (15)
  - Vascular compression [Unknown]
  - Varices oesophageal [Recovering/Resolving]
  - Splenic varices [Unknown]
  - Nausea [Recovering/Resolving]
  - Abdominal pain upper [Recovering/Resolving]
  - Haematemesis [Recovering/Resolving]
  - Haemangioma of liver [Unknown]
  - Hepatomegaly [Unknown]
  - Weight decreased [Unknown]
  - Platelet count decreased [Unknown]
  - Early satiety [Unknown]
  - Gastritis [Recovering/Resolving]
  - Portal hypertension [Unknown]
  - Splenomegaly [Unknown]
  - Hiatus hernia [Recovering/Resolving]
